FAERS Safety Report 4378125-9 (Version None)
Quarter: 2004Q2

REPORT INFORMATION
  Report Type: 
  Country: None (occurrence: None)
  Receive Date: 20040609
  Receipt Date: 20040601
  Transmission Date: 20050107
  Serious: No
  Sender: FDA-Public Use
  Company Number: 04H-144-0262570-00

PATIENT

DRUGS (2)
  1. MIDAZOLAM HYDROCHLORIDE [Suspect]
     Indication: ANAESTHESIA
  2. PROPOFOL [Suspect]
     Indication: ANAESTHESIA

REACTIONS (3)
  - CONVULSION [None]
  - ELECTROCARDIOGRAM ABNORMAL [None]
  - HYPOTHERMIA [None]
